FAERS Safety Report 22157534 (Version 2)
Quarter: 2023Q2

REPORT INFORMATION
  Report Type: Spontaneous
  Country: CZ (occurrence: CZ)
  Receive Date: 20230330
  Receipt Date: 20230413
  Transmission Date: 20230721
  Serious: Yes (Other)
  Sender: FDA-Public Use
  Company Number: CZ-CZPHARMAP-OLIKLA20230307b_Lit

PATIENT
  Age: 85 Year
  Sex: Female
  Weight: 70 kg

DRUGS (3)
  1. ACYCLOVIR [Suspect]
     Active Substance: ACYCLOVIR
     Indication: Ophthalmic herpes zoster
     Dosage: START DATE 04/OCT/UNSPECIFIED YEAR AT 15:00 TO 06/OCT/UNSPECIFIED YEAR
     Route: 042
  2. ACYCLOVIR [Suspect]
     Active Substance: ACYCLOVIR
     Indication: Conjunctivitis
  3. ACYCLOVIR [Suspect]
     Active Substance: ACYCLOVIR
     Indication: Keratitis

REACTIONS (2)
  - Nephropathy toxic [Unknown]
  - Neurotoxicity [Unknown]
